FAERS Safety Report 9074771 (Version 1)
Quarter: 2013Q1

REPORT INFORMATION
  Report Type: Spontaneous
  Country: FR (occurrence: FR)
  Receive Date: 20130129
  Receipt Date: 20130129
  Transmission Date: 20140127
  Serious: Yes (Other)
  Sender: FDA-Public Use
  Company Number: FR-TEVA-381432ISR

PATIENT
  Sex: Female

DRUGS (3)
  1. OXALIPLATINE [Suspect]
     Indication: COLON CANCER
     Dosage: 120 MILLIGRAM DAILY; 120 MG PER COURSE
     Route: 042
     Dates: start: 20120702
  2. FLUOROURACILE [Suspect]
     Indication: COLON CANCER
     Dosage: 450 MILLIGRAM DAILY; 450 MG PER COURSE
     Route: 042
     Dates: start: 20120702
  3. FOLINIC ACID [Suspect]

REACTIONS (3)
  - Paraesthesia [Recovered/Resolved]
  - Cyanosis [Recovered/Resolved]
  - Carpal tunnel syndrome [Recovered/Resolved]
